FAERS Safety Report 21289187 (Version 1)
Quarter: 2022Q3

REPORT INFORMATION
  Report Type: Spontaneous
  Country: US (occurrence: US)
  Receive Date: 20220902
  Receipt Date: 20220902
  Transmission Date: 20221026
  Serious: No
  Sender: FDA-Public Use
  Company Number: US-ABBVIE-22K-163-4366261-00

PATIENT
  Sex: Male
  Weight: 88.076 kg

DRUGS (7)
  1. TRILIPIX [Suspect]
     Active Substance: FENOFIBRIC ACID
     Indication: Blood triglycerides increased
     Route: 048
     Dates: start: 202112, end: 202203
  2. TRILIPIX [Suspect]
     Active Substance: FENOFIBRIC ACID
     Route: 048
     Dates: start: 202203, end: 202203
  3. TRILIPIX [Suspect]
     Active Substance: FENOFIBRIC ACID
     Route: 048
     Dates: start: 202203, end: 202203
  4. MODERNA COVID-19 VACCINE [Concomitant]
     Active Substance: ELASOMERAN
     Indication: COVID-19 immunisation
     Route: 030
     Dates: start: 2021, end: 2021
  5. MODERNA COVID-19 VACCINE [Concomitant]
     Active Substance: ELASOMERAN
     Route: 030
     Dates: start: 2021, end: 2021
  6. MODERNA COVID-19 VACCINE [Concomitant]
     Active Substance: ELASOMERAN
     Route: 030
     Dates: start: 202112, end: 202112
  7. ALLEGRA [Concomitant]
     Active Substance: FEXOFENADINE HYDROCHLORIDE
     Indication: Seasonal allergy

REACTIONS (4)
  - Back pain [Not Recovered/Not Resolved]
  - Back pain [Recovered/Resolved]
  - Back pain [Recovered/Resolved]
  - Glomerular filtration rate decreased [Unknown]

NARRATIVE: CASE EVENT DATE: 20220101
